FAERS Safety Report 10023965 (Version 5)
Quarter: 2014Q2

REPORT INFORMATION
  Report Type: Spontaneous
  Country: JP (occurrence: JP)
  Receive Date: 20140320
  Receipt Date: 20140604
  Transmission Date: 20141212
  Serious: Yes (Other)
  Sender: FDA-Public Use
  Company Number: JP-ASTELLAS-2014US002734

PATIENT
  Age: 61 Year
  Sex: Male

DRUGS (25)
  1. TARCEVA [Suspect]
     Indication: LUNG ADENOCARCINOMA
     Route: 048
  2. TARCEVA [Suspect]
     Route: 048
     Dates: start: 20140312
  3. TARCEVA [Suspect]
     Route: 048
     Dates: start: 20131101, end: 20140327
  4. LOPEMIN                            /00384302/ [Concomitant]
     Indication: DIARRHOEA
     Route: 048
     Dates: start: 20060714
  5. CEREKINON [Concomitant]
     Indication: GASTRITIS
     Route: 048
     Dates: start: 20060714
  6. CODEINE PHOSPHATE [Concomitant]
     Indication: LUNG ADENOCARCINOMA
     Route: 048
     Dates: start: 20100209
  7. ASACOL [Concomitant]
     Indication: COLITIS ULCERATIVE
     Route: 048
     Dates: start: 20101029
  8. GASMOTIN [Concomitant]
     Indication: GASTRITIS
     Route: 048
     Dates: start: 20101029
  9. LANIRAPID [Concomitant]
     Indication: TACHYARRHYTHMIA
     Dosage: 0.1 MG, ONCE DAILY
     Route: 048
     Dates: start: 20121023
  10. ALINAMIN F                         /00257801/ [Concomitant]
     Indication: LUNG ADENOCARCINOMA
     Route: 048
     Dates: start: 20121130
  11. MERISLON [Concomitant]
     Indication: DIZZINESS
     Route: 048
     Dates: start: 20140121
  12. MEVALOTIN [Concomitant]
     Indication: PRODUCT USED FOR UNKNOWN INDICATION
     Route: 048
  13. BIO-THREE [Concomitant]
     Indication: PRODUCT USED FOR UNKNOWN INDICATION
     Route: 048
  14. NU-LOTAN [Concomitant]
     Indication: PRODUCT USED FOR UNKNOWN INDICATION
  15. LASIX                              /00032601/ [Concomitant]
     Indication: PRODUCT USED FOR UNKNOWN INDICATION
     Route: 048
  16. EBASTEL [Concomitant]
     Indication: PRODUCT USED FOR UNKNOWN INDICATION
     Route: 048
  17. MARZULENE-S [Concomitant]
     Indication: PRODUCT USED FOR UNKNOWN INDICATION
     Dosage: 0.5 G, EVERY 8 HOURS
     Route: 065
  18. LOXONIN [Concomitant]
     Indication: PRODUCT USED FOR UNKNOWN INDICATION
  19. NAUZELIN [Concomitant]
     Indication: PRODUCT USED FOR UNKNOWN INDICATION
     Route: 048
  20. ALOSENN                            /02118001/ [Concomitant]
     Indication: PRODUCT USED FOR UNKNOWN INDICATION
     Dosage: 0.5 G, ONCE DAILY
     Route: 065
  21. PARIET [Concomitant]
     Indication: PRODUCT USED FOR UNKNOWN INDICATION
     Route: 048
  22. GENTACIN [Concomitant]
     Indication: PRODUCT USED FOR UNKNOWN INDICATION
     Route: 003
  23. RINDERON-DP [Concomitant]
     Indication: PRODUCT USED FOR UNKNOWN INDICATION
     Route: 003
  24. PREDNISOLONE [Concomitant]
     Indication: PRODUCT USED FOR UNKNOWN INDICATION
     Dosage: UNK UNK, UNKNOWN FREQ.
     Route: 065
  25. FLAVITAN [Concomitant]
     Indication: PRODUCT USED FOR UNKNOWN INDICATION
     Route: 048

REACTIONS (8)
  - Respiratory disorder [Unknown]
  - Nasal congestion [Unknown]
  - Vomiting [Not Recovered/Not Resolved]
  - Nausea [Unknown]
  - Epistaxis [Unknown]
  - Headache [Unknown]
  - Dermatitis [Not Recovered/Not Resolved]
  - Folliculitis [Unknown]
